FAERS Safety Report 20901396 (Version 3)
Quarter: 2022Q2

REPORT INFORMATION
  Report Type: Report from Study
  Country: US (occurrence: US)
  Receive Date: 20220601
  Receipt Date: 20220621
  Transmission Date: 20220721
  Serious: No
  Sender: FDA-Public Use
  Company Number: US-BIOVITRUM-2022US06617

PATIENT
  Sex: Female

DRUGS (2)
  1. DOPTELET [Suspect]
     Active Substance: AVATROMBOPAG MALEATE
     Indication: Immune thrombocytopenia
     Route: 048
     Dates: start: 20220405
  2. DOPTELET [Suspect]
     Active Substance: AVATROMBOPAG MALEATE
     Route: 048
     Dates: start: 20220428

REACTIONS (11)
  - Cough [Unknown]
  - Oropharyngeal pain [Unknown]
  - Illness [Unknown]
  - Somnolence [Unknown]
  - Feeding disorder [Unknown]
  - Asthenia [Unknown]
  - Blood glucose increased [Unknown]
  - Nausea [Unknown]
  - Abdominal pain upper [Unknown]
  - Adverse drug reaction [Unknown]
  - Product dose omission issue [Unknown]
